FAERS Safety Report 9080632 (Version 1)
Quarter: 2013Q1

REPORT INFORMATION
  Report Type: Report from Study
  Country: US (occurrence: US)
  Receive Date: 20130130
  Receipt Date: 20130130
  Transmission Date: 20140127
  Serious: Yes (Hospitalization)
  Sender: FDA-Public Use
  Company Number: US-ABBOTT-12P-163-0965439-00

PATIENT
  Age: 78 Year
  Sex: Male

DRUGS (5)
  1. HUMIRA 40 MG/0.8 ML PEN [Suspect]
     Indication: PSORIASIS
     Dates: start: 20120507
  2. TRIAMCINOLONE ACETONIDE [Concomitant]
     Indication: PRODUCT USED FOR UNKNOWN INDICATION
  3. ALBUTEROL [Concomitant]
     Indication: ASTHMA
     Route: 055
  4. ADVAIR [Concomitant]
     Indication: ASTHMA
     Route: 055
  5. PREDNISONE [Concomitant]
     Indication: ASTHMA
     Dosage: 15MG DAILY

REACTIONS (1)
  - Urinary tract infection [Recovered/Resolved]
